FAERS Safety Report 11553781 (Version 2)
Quarter: 2015Q4

REPORT INFORMATION
  Report Type: Spontaneous
  Country: FR (occurrence: FR)
  Receive Date: 20150925
  Receipt Date: 20151021
  Transmission Date: 20160304
  Serious: Yes (Death)
  Sender: FDA-Public Use
  Company Number: FR-BAYER-2015-424670

PATIENT
  Age: 66 Year
  Sex: Male
  Weight: 84 kg

DRUGS (2)
  1. XOFIGO [Suspect]
     Active Substance: RADIUM RA-223 DICHLORIDE
     Indication: METASTATIC PAIN
     Dosage: EVERY 4 WEEKS, 50 KBQ/KG
     Route: 042
     Dates: start: 20150804, end: 20150804
  2. XOFIGO [Suspect]
     Active Substance: RADIUM RA-223 DICHLORIDE
     Indication: METASTATIC PAIN
     Dosage: EVERY 4 WEEKS, 50 KBQ/KG
     Route: 042
     Dates: start: 20150707, end: 20150707

REACTIONS (1)
  - Pulmonary embolism [Fatal]
